FAERS Safety Report 5764447-3 (Version None)
Quarter: 2008Q2

REPORT INFORMATION
  Report Type: 
  Country: None (occurrence: None)
  Receive Date: 20080610
  Receipt Date: 20080529
  Transmission Date: 20081010
  Serious: Yes (Other)
  Sender: FDA-Public Use
  Company Number: US-PFIZER INC-2008014004

PATIENT
  Sex: Female

DRUGS (2)
  1. DETROL [Suspect]
  2. FLEXERIL [Suspect]

REACTIONS (3)
  - DRY MOUTH [None]
  - FOOT OPERATION [None]
  - URETHRAL SPASM [None]
